FAERS Safety Report 25424811 (Version 1)
Quarter: 2025Q2

REPORT INFORMATION
  Report Type: Spontaneous
  Country: US (occurrence: US)
  Receive Date: 20250611
  Receipt Date: 20250611
  Transmission Date: 20250716
  Serious: Yes (Other)
  Sender: AMGEN
  Company Number: US-AMGEN-USASP2025110218

PATIENT
  Age: 66 Year
  Sex: Male

DRUGS (6)
  1. PREDNISONE [Suspect]
     Active Substance: PREDNISONE
     Indication: Gastrointestinal toxicity
     Route: 065
  2. TOCILIZUMAB [Concomitant]
     Active Substance: TOCILIZUMAB
  3. Immunoglobulin [Concomitant]
     Route: 040
  4. VEDOLIZUMAB [Concomitant]
     Active Substance: VEDOLIZUMAB
  5. BUDESONIDE [Concomitant]
     Active Substance: BUDESONIDE
  6. RUXOLITINIB [Concomitant]
     Active Substance: RUXOLITINIB

REACTIONS (3)
  - Clostridium difficile infection [Unknown]
  - Diarrhoea [Recovering/Resolving]
  - Off label use [Unknown]
